FAERS Safety Report 8454704-4 (Version None)
Quarter: 2012Q2

REPORT INFORMATION
  Report Type: 
  Country: None (occurrence: None)
  Receive Date: 20120615
  Receipt Date: 20120615
  Transmission Date: 20120825
  Serious: No
  Sender: FDA-Public Use
  Company Number: None

PATIENT
  Sex: Female

DRUGS (2)
  1. RIBAVIRIN [Suspect]
     Dosage: RIBAVIRIN DAILY PO
     Route: 048
     Dates: start: 20120509
  2. PEGASYS [Suspect]
     Dosage: 180MCG WEEKLY SUB-Q
     Route: 058
     Dates: start: 20120509

REACTIONS (1)
  - VISION BLURRED [None]
